FAERS Safety Report 6519183-2 (Version None)
Quarter: 2009Q4

REPORT INFORMATION
  Report Type: 
  Country: None (occurrence: None)
  Receive Date: 20091228
  Receipt Date: 20080512
  Transmission Date: 20100525
  Serious: Yes (Death, Hospitalization)
  Sender: FDA-Public Use
  Company Number: FR-PFIZER INC-2009249825

PATIENT
  Age: 60 Year
  Sex: Male

DRUGS (14)
  1. IRINOTECAN HCL [Suspect]
     Indication: METASTATIC GASTRIC CANCER
     Dosage: TD: 1240 MG
     Dates: start: 20070227
  2. FLUOROURACIL [Suspect]
     Indication: METASTATIC GASTRIC CANCER
     Dosage: TD: 14600 MG/ CONTINUOUS
     Route: 041
     Dates: start: 20070227
  3. FLUOROURACIL [Suspect]
     Dosage: TD: 2760 MG/ BOLUS
     Route: 040
  4. FOLINIC ACID [Suspect]
     Indication: METASTATIC GASTRIC CANCER
     Dosage: TD: 2760 MG
     Dates: start: 20070227
  5. FORLAX [Concomitant]
     Indication: CONSTIPATION
     Dosage: UNK
     Route: 048
     Dates: start: 20070401, end: 20070527
  6. STILNOX [Concomitant]
     Indication: INSOMNIA
     Dosage: UNK
     Route: 048
     Dates: start: 20070301, end: 20070527
  7. ZOPHREN [Concomitant]
     Indication: NAUSEA
     Dosage: 8 MG
     Route: 042
     Dates: start: 20070501, end: 20070527
  8. LASILIX [Concomitant]
     Indication: DIURETIC THERAPY
     Dosage: UNK
     Route: 042
     Dates: start: 20070424, end: 20070527
  9. MORPHINE [Concomitant]
     Indication: PAIN
     Dosage: UNK
     Route: 042
     Dates: start: 20070301, end: 20070527
  10. PARACETAMOL [Concomitant]
     Indication: PAIN
     Dosage: UNK
     Route: 048
     Dates: start: 20070301, end: 20070527
  11. LARGACTIL [Concomitant]
     Indication: NERVOUS SYSTEM DISORDER
     Dosage: UNK
     Route: 042
     Dates: start: 20070301, end: 20070527
  12. FUMAFER [Concomitant]
     Indication: ANAEMIA
     Dosage: UNK
     Route: 048
     Dates: start: 20070424, end: 20070527
  13. PRIMPERAN TAB [Concomitant]
     Indication: NAUSEA
     Dosage: UNK
     Route: 048
     Dates: start: 20070401, end: 20070527
  14. LOVENOX [Concomitant]
     Indication: ANTICOAGULANT THERAPY
     Dosage: UNK
     Route: 058
     Dates: start: 20070301, end: 20070527

REACTIONS (2)
  - GENERAL PHYSICAL HEALTH DETERIORATION [None]
  - HAEMATEMESIS [None]
